FAERS Safety Report 5723480-8 (Version None)
Quarter: 2008Q2

REPORT INFORMATION
  Report Type: 
  Country: None (occurrence: None)
  Receive Date: 20080425
  Receipt Date: 20071113
  Transmission Date: 20081010
  Serious: Yes (Other)
  Sender: FDA-Public Use
  Company Number: 2007335272

PATIENT
  Age: 3 Year
  Sex: Male

DRUGS (1)
  1. BENADRYL [Suspect]
     Dosage: ALMOST THE ENTIRE BOTTLE (8 OZ BOTTLE), ORAL
     Route: 048

REACTIONS (2)
  - ACCIDENTAL OVERDOSE [None]
  - WRONG DRUG ADMINISTERED [None]
